FAERS Safety Report 11138323 (Version 2)
Quarter: 2015Q4

REPORT INFORMATION
  Report Type: Report from Study
  Country: US (occurrence: US)
  Receive Date: 20150526
  Receipt Date: 20151030
  Transmission Date: 20160304
  Serious: Yes (Other)
  Sender: FDA-Public Use
  Company Number: US-SA-2015SA055018

PATIENT
  Age: 62 Year
  Sex: Male

DRUGS (7)
  1. AUBAGIO [Suspect]
     Active Substance: TERIFLUNOMIDE
     Indication: MULTIPLE SCLEROSIS
     Route: 048
     Dates: start: 20150301, end: 201504
  2. ACYCLOVIR. [Concomitant]
     Active Substance: ACYCLOVIR
     Indication: HERPES OPHTHALMIC
     Dates: start: 20120101
  3. DHEA [Concomitant]
     Active Substance: PRASTERONE
     Dates: start: 20050901
  4. NUVIGIL [Concomitant]
     Active Substance: ARMODAFINIL
     Indication: FATIGUE
     Dates: start: 20000701
  5. COPAXONE [Concomitant]
     Active Substance: GLATIRAMER ACETATE
     Indication: MULTIPLE SCLEROSIS
     Dates: start: 19980715
  6. NUVIGIL [Concomitant]
     Active Substance: ARMODAFINIL
     Indication: DEPRESSED LEVEL OF CONSCIOUSNESS
     Dates: start: 20000701
  7. LEXAPRO [Concomitant]
     Active Substance: ESCITALOPRAM OXALATE
     Dates: start: 199901

REACTIONS (11)
  - Balance disorder [Recovered/Resolved]
  - Fatigue [Recovered/Resolved]
  - Feeling abnormal [Recovered/Resolved]
  - Condition aggravated [Not Recovered/Not Resolved]
  - Optic neuritis [Recovered/Resolved]
  - Multiple sclerosis relapse [Recovered/Resolved]
  - Trigeminal neuralgia [Not Recovered/Not Resolved]
  - Condition aggravated [Recovered/Resolved]
  - Paraesthesia [Recovered/Resolved]
  - Muscle spasticity [Recovered/Resolved]
  - Malaise [Recovered/Resolved]

NARRATIVE: CASE EVENT DATE: 20150401
